FAERS Safety Report 4775497-8 (Version None)
Quarter: 2005Q3

REPORT INFORMATION
  Report Type: 
  Country: None (occurrence: None)
  Receive Date: 20050921
  Receipt Date: 20050921
  Transmission Date: 20060218
  Serious: Yes (Hospitalization)
  Sender: FDA-Public Use
  Company Number: None

PATIENT
  Sex: Female
  Weight: 104 kg

DRUGS (2)
  1. WINRHO [Suspect]
     Indication: THROMBOCYTOPENIA
     Dosage: 50 MCG/KG IV X 2
     Route: 042
     Dates: start: 20050826
  2. WINRHO [Suspect]
     Indication: THROMBOCYTOPENIA
     Dosage: 50 MCG/KG IV X 2
     Route: 042
     Dates: start: 20050827

REACTIONS (15)
  - BACK PAIN [None]
  - BRAIN OEDEMA [None]
  - EYE OEDEMA [None]
  - GAIT DISTURBANCE [None]
  - HAEMANGIOMA [None]
  - HAEMATOMA [None]
  - HAEMOLYTIC ANAEMIA [None]
  - INTRACRANIAL PRESSURE INCREASED [None]
  - INTRACRANIAL VENOUS SINUS THROMBOSIS [None]
  - MENTAL STATUS CHANGES [None]
  - NERVOUS SYSTEM DISORDER [None]
  - OVERDOSE [None]
  - PAIN [None]
  - VISUAL DISTURBANCE [None]
  - VOMITING [None]
